FAERS Safety Report 13477555 (Version 1)
Quarter: 2017Q2

REPORT INFORMATION
  Report Type: Spontaneous
  Country: US (occurrence: US)
  Receive Date: 20170425
  Receipt Date: 20170425
  Transmission Date: 20170830
  Serious: Yes (Life-Threatening, Other)
  Sender: FDA-Public Use
  Company Number: None

PATIENT
  Age: 65 Year
  Sex: Male
  Weight: 83.6 kg

DRUGS (2)
  1. ASPARAGINASE E.COLI 10,000 UNIT [Suspect]
     Active Substance: ASPARAGINASE
     Indication: CHEMOTHERAPY
     Route: 042
     Dates: start: 20160923, end: 20160923
  2. ASPARAGINASE E.COLI 10,000 UNIT [Suspect]
     Active Substance: ASPARAGINASE
     Indication: T-CELL LYMPHOMA
     Route: 042
     Dates: start: 20160923, end: 20160923

REACTIONS (4)
  - Hypotension [None]
  - Oxygen saturation decreased [None]
  - Unresponsive to stimuli [None]
  - Eye movement disorder [None]

NARRATIVE: CASE EVENT DATE: 20160923
